FAERS Safety Report 4431583-3 (Version None)
Quarter: 2004Q3

REPORT INFORMATION
  Report Type: 
  Country: None (occurrence: None)
  Receive Date: 20040726
  Receipt Date: 20040504
  Transmission Date: 20050211
  Serious: No
  Sender: FDA-Public Use
  Company Number: US_0403101171

PATIENT
  Age: 77 Year
  Sex: Female

DRUGS (5)
  1. FORTEO [Suspect]
     Indication: OSTEOPOROSIS
     Dosage: 20 UG DAY
     Dates: start: 20030401, end: 20040201
  2. SYNTHROID [Concomitant]
  3. BACLOFEN [Concomitant]
  4. PRAVACHOL [Concomitant]
  5. NEXIUM [Concomitant]

REACTIONS (3)
  - AORTIC VALVE DISEASE [None]
  - DIZZINESS [None]
  - TRICUSPID VALVE DISEASE [None]
